FAERS Safety Report 13347656 (Version 1)
Quarter: 2017Q1

REPORT INFORMATION
  Report Type: Spontaneous
  Country: NZ (occurrence: NZ)
  Receive Date: 20170317
  Receipt Date: 20170317
  Transmission Date: 20170428
  Serious: Yes (Other)
  Sender: FDA-Public Use
  Company Number: NZ-ABBVIE-17P-118-1909864-00

PATIENT
  Age: 14 Year
  Sex: Female

DRUGS (1)
  1. EPILIM EC [Suspect]
     Active Substance: VALPROATE SODIUM
     Indication: MATERNAL EXPOSURE TIMING UNSPECIFIED
     Route: 064

REACTIONS (3)
  - Speech disorder developmental [Unknown]
  - Foetal exposure during pregnancy [Unknown]
  - Autism [Unknown]
